FAERS Safety Report 4262235-0 (Version None)
Quarter: 2004Q1

REPORT INFORMATION
  Report Type: 
  Country: None (occurrence: None)
  Receive Date: 20040102
  Receipt Date: 20031220
  Transmission Date: 20041129
  Serious: Yes (Hospitalization)
  Sender: FDA-Public Use
  Company Number: PHBS2003JP14435

PATIENT
  Age: 25 Year
  Sex: 0

DRUGS (4)
  1. TEGRETOL [Suspect]
     Dosage: 1200 MG, ONCE/SINGLE
     Route: 048
     Dates: start: 20031219, end: 20031219
  2. RIVOTRIL [Concomitant]
     Dosage: 6 TABLETS/DAY
     Route: 048
  3. PHENOBAL [Concomitant]
     Dosage: 6 TABLETS/DAY
     Route: 048
  4. DEPAKENE [Concomitant]
     Dosage: 800 MG/DAY
     Route: 065

REACTIONS (3)
  - ACCIDENTAL OVERDOSE [None]
  - DYSSTASIA [None]
  - MEDICATION ERROR [None]
